FAERS Safety Report 18173013 (Version 3)
Quarter: 2021Q1

REPORT INFORMATION
  Report Type: Spontaneous
  Country: US (occurrence: US)
  Receive Date: 20200819
  Receipt Date: 20210121
  Transmission Date: 20210419
  Serious: Yes (Other)
  Sender: FDA-Public Use
  Company Number: US-GILEAD-2020-0489954

PATIENT
  Age: 36 Year
  Sex: Male

DRUGS (8)
  1. SUSTIVA [Concomitant]
     Active Substance: EFAVIRENZ
  2. ATRIPLA [Suspect]
     Active Substance: EFAVIRENZ\EMTRICITABINE\TENOFOVIR DISOPROXIL FUMARATE
     Indication: HIV INFECTION
     Dosage: UNK
     Route: 065
     Dates: start: 2010, end: 20121016
  3. PREZISTA [Concomitant]
     Active Substance: DARUNAVIR ETHANOLATE
  4. NORVIR [Concomitant]
     Active Substance: RITONAVIR
  5. COMBIVIR [Concomitant]
     Active Substance: LAMIVUDINE\ZIDOVUDINE
  6. TRIUMEQ [Concomitant]
     Active Substance: ABACAVIR SULFATE\DOLUTEGRAVIR SODIUM\LAMIVUDINE
  7. TIVICAY [Concomitant]
     Active Substance: DOLUTEGRAVIR SODIUM
  8. TRUVADA [Suspect]
     Active Substance: EMTRICITABINE\TENOFOVIR DISOPROXIL FUMARATE
     Indication: HIV INFECTION
     Dosage: UNK
     Route: 065
     Dates: start: 2010, end: 20160330

REACTIONS (9)
  - Emotional distress [Not Recovered/Not Resolved]
  - Renal injury [Recovered/Resolved]
  - Anxiety [Not Recovered/Not Resolved]
  - Intervertebral disc protrusion [Unknown]
  - Bone density decreased [Unknown]
  - Osteoporosis [Recovered/Resolved]
  - Osteopenia [Recovered/Resolved]
  - Anhedonia [Not Recovered/Not Resolved]
  - Pain [Not Recovered/Not Resolved]

NARRATIVE: CASE EVENT DATE: 2015
